FAERS Safety Report 16756102 (Version 6)
Quarter: 2020Q4

REPORT INFORMATION
  Report Type: Spontaneous
  Country: ES (occurrence: ES)
  Receive Date: 20190829
  Receipt Date: 20201207
  Transmission Date: 20210113
  Serious: Yes (Other)
  Sender: FDA-Public Use
  Company Number: ES-MYLANLABS-2019M1080956

PATIENT
  Age: 53 Year
  Sex: Male

DRUGS (8)
  1. FENTANYL. [Suspect]
     Active Substance: FENTANYL
     Indication: SEDATIVE THERAPY
     Dosage: UNK (UNKNOWN DOSE)
     Route: 065
  2. PROPOFOL. [Suspect]
     Active Substance: PROPOFOL
     Indication: SEDATIVE THERAPY
     Dosage: UNK (UNKNOWN DOSE)
  3. KEPPRA [Suspect]
     Active Substance: LEVETIRACETAM
     Indication: DYSKINESIA
     Dosage: UNK
  4. LEVETIRACETAM. [Suspect]
     Active Substance: LEVETIRACETAM
     Indication: TREMOR
  5. KEPPRA [Suspect]
     Active Substance: LEVETIRACETAM
     Dosage: 2000 MILLIGRAM, QD (1000 MG, 2X/DAY (BID))
  6. LEVETIRACETAM. [Suspect]
     Active Substance: LEVETIRACETAM
     Indication: DYSKINESIA
     Dosage: 1000 MILLIGRAM, BID
  7. KEPPRA [Suspect]
     Active Substance: LEVETIRACETAM
     Dosage: 1000 MILLIGRAM, BID 1000 MG, 2X/DAY (BID)
  8. KEPPRA [Suspect]
     Active Substance: LEVETIRACETAM
     Indication: TREMOR
     Dosage: UNK

REACTIONS (5)
  - Dermatitis bullous [Recovered/Resolved]
  - Coma blister [Recovering/Resolving]
  - Skin lesion [Recovered/Resolved]
  - Off label use [Unknown]
  - Product use in unapproved indication [Unknown]
